FAERS Safety Report 5464834-7 (Version None)
Quarter: 2007Q3

REPORT INFORMATION
  Report Type: 
  Country: None (occurrence: None)
  Receive Date: 20070921
  Receipt Date: 20070909
  Transmission Date: 20080115
  Serious: Yes (Other)
  Sender: FDA-Public Use
  Company Number: US-PFIZER INC-2007075140

PATIENT
  Sex: Female
  Weight: 56.8 kg

DRUGS (14)
  1. DETROL LA [Suspect]
     Indication: HYPERTONIC BLADDER
     Route: 048
     Dates: start: 20070829, end: 20070907
  2. FLUOXETINE [Interacting]
     Indication: DEPRESSION
  3. ALCOHOL [Interacting]
     Dosage: TEXT:12 TO 14 OUNCES
  4. ASPIRIN [Concomitant]
  5. HYZAAR [Concomitant]
  6. OXYCODONE HCL [Concomitant]
  7. LIPITOR [Concomitant]
  8. METFORMIN [Concomitant]
  9. NORVASC [Concomitant]
  10. METOPROLOL SUCCINATE [Concomitant]
  11. AMBIEN [Concomitant]
  12. VITAMIN CAP [Concomitant]
  13. MELATONIN [Concomitant]
  14. TOPROL-XL [Concomitant]

REACTIONS (5)
  - CHILLS [None]
  - DEPRESSION [None]
  - DRUG INTERACTION [None]
  - HEART RATE INCREASED [None]
  - VOMITING [None]
